FAERS Safety Report 16862973 (Version 1)
Quarter: 2019Q3

REPORT INFORMATION
  Report Type: Spontaneous
  Country: NL (occurrence: NL)
  Receive Date: 20190927
  Receipt Date: 20190927
  Transmission Date: 20191005
  Serious: Yes (Life-Threatening)
  Sender: FDA-Public Use
  Company Number: PHHY2019NL223329

PATIENT
  Age: 77 Year
  Sex: Male
  Weight: 87 kg

DRUGS (11)
  1. MACROGOL [Concomitant]
     Active Substance: POLYETHYLENE GLYCOLS
     Indication: PRODUCT USED FOR UNKNOWN INDICATION
     Dosage: 1 DF, QD (1 X PER DAG 1 STUK)
     Route: 065
  2. PANTOPRAZOL [Concomitant]
     Active Substance: PANTOPRAZOLE SODIUM
     Indication: PRODUCT USED FOR UNKNOWN INDICATION
     Dosage: 40 MG, UNK (1 X PER DAG 1 STUK)
     Route: 065
     Dates: start: 20120219
  3. ACETYLSALICYLZUUR [Concomitant]
     Active Substance: ASPIRIN
     Indication: PRODUCT USED FOR UNKNOWN INDICATION
     Dosage: 80 MG, QD(1 X PER DAG 1 STUK)
     Route: 065
     Dates: start: 20120210
  4. AMIODARONE [Suspect]
     Active Substance: AMIODARONE
     Indication: VENTRICULAR TACHYCARDIA
     Dosage: 200 MG, Q12H (2X PER DAG 1 STUK)
     Route: 065
     Dates: start: 20170531
  5. METOPROLOL. [Concomitant]
     Active Substance: METOPROLOL
     Indication: PRODUCT USED FOR UNKNOWN INDICATION
     Dosage: 100 MG, QD (1 X PER DAG 1 STUK. START 75MG: 18-02-2012. DOSERING NAAR 100MG SINDS: 19-02-2012)
     Route: 065
     Dates: start: 20120218
  6. ROSUVASTATINE [Concomitant]
     Active Substance: ROSUVASTATIN
     Indication: PRODUCT USED FOR UNKNOWN INDICATION
     Dosage: 40 MG, QD(1 X PER DAG 1 STUK)
     Route: 065
     Dates: start: 20120210
  7. ENALAPRIL [Concomitant]
     Active Substance: ENALAPRIL
     Indication: PRODUCT USED FOR UNKNOWN INDICATION
     Dosage: 20 MG, Q12H (2 X PER DAG 1 STUK. START 10MG: 20-02-2012. START 20MG: 24-02-2012)
     Route: 065
     Dates: start: 20120220
  8. FUROSEMIDE. [Concomitant]
     Active Substance: FUROSEMIDE
     Indication: PRODUCT USED FOR UNKNOWN INDICATION
     Dosage: 40 MG, QD (1 X PER DAG 1 STUK )
     Route: 065
     Dates: start: 20030106
  9. RIVAROXABAN [Concomitant]
     Active Substance: RIVAROXABAN
     Indication: PRODUCT USED FOR UNKNOWN INDICATION
     Dosage: 2 MG, Q12H (2 X PER DAG 1 STUK)
     Route: 065
     Dates: start: 20160429
  10. PARACETAMOL [Concomitant]
     Active Substance: ACETAMINOPHEN
     Indication: PRODUCT USED FOR UNKNOWN INDICATION
     Dosage: 1000 MG, UNK (ZO NODIG 4 X PER DAG 2 STUKS)
     Route: 065
  11. LEVOTHYROXINE. [Concomitant]
     Active Substance: LEVOTHYROXINE
     Indication: PRODUCT USED FOR UNKNOWN INDICATION
     Dosage: 25 UG, QD (1 X PER DAG 1 STUK)
     Route: 065
     Dates: start: 20190709

REACTIONS (2)
  - Dyspnoea [Recovering/Resolving]
  - Acute respiratory failure [Recovering/Resolving]

NARRATIVE: CASE EVENT DATE: 20190826
